FAERS Safety Report 11594729 (Version 2)
Quarter: 2015Q4

REPORT INFORMATION
  Report Type: Spontaneous
  Country: JP (occurrence: JP)
  Receive Date: 20151005
  Receipt Date: 20151016
  Transmission Date: 20160304
  Serious: Yes (Hospitalization)
  Sender: FDA-Public Use
  Company Number: JP-PFIZER INC-2015330531

PATIENT
  Age: 65 Year
  Sex: Male
  Weight: 43 kg

DRUGS (33)
  1. CAMPTO [Suspect]
     Active Substance: IRINOTECAN
     Dosage: 200 MG, 1X/DAY
     Route: 041
     Dates: start: 20140709, end: 20140709
  2. CAMPTO [Suspect]
     Active Substance: IRINOTECAN
     Dosage: 200 MG, 1X/DAY
     Route: 041
     Dates: start: 20140904, end: 20140904
  3. CAMPTO [Suspect]
     Active Substance: IRINOTECAN
     Dosage: 200 MG, 1X/DAY
     Route: 041
     Dates: start: 20140918, end: 20140918
  4. CAMPTO [Suspect]
     Active Substance: IRINOTECAN
     Dosage: 200 MG, 1X/DAY
     Route: 041
     Dates: start: 20141002, end: 20141002
  5. LEVOFOLINATE YAKULT [Suspect]
     Active Substance: LEVOLEUCOVORIN CALCIUM
     Dosage: 250 MG, 1X/DAY
     Route: 041
     Dates: start: 20141030, end: 20141030
  6. LEVOFOLINATE YAKULT [Suspect]
     Active Substance: LEVOLEUCOVORIN CALCIUM
     Dosage: 250 MG, 1X/DAY
     Route: 041
     Dates: start: 20140709, end: 20140709
  7. 5-FU [Concomitant]
     Active Substance: FLUOROURACIL
     Dosage: 3200 MG/BODY/D1-2 (2381 MG/M2/D1-2)
     Dates: start: 20140625
  8. CAMPTO [Suspect]
     Active Substance: IRINOTECAN
     Dosage: 200 MG, 1X/DAY
     Route: 041
     Dates: start: 20140821, end: 20140821
  9. CAMPTO [Suspect]
     Active Substance: IRINOTECAN
     Dosage: 200 MG, 1X/DAY
     Route: 041
     Dates: start: 20141030, end: 20141030
  10. LEVOFOLINATE YAKULT [Suspect]
     Active Substance: LEVOLEUCOVORIN CALCIUM
     Dosage: 250 MG, 1X/DAY
     Route: 041
     Dates: start: 20141113, end: 20141113
  11. CAMPTO [Suspect]
     Active Substance: IRINOTECAN
     Dosage: 200 MG, 1X/DAY
     Route: 041
     Dates: start: 20141113, end: 20141113
  12. CAMPTO [Suspect]
     Active Substance: IRINOTECAN
     Dosage: 200 MG, 1X/DAY
     Route: 041
     Dates: start: 20141211, end: 20141211
  13. ELPLAT [Suspect]
     Active Substance: OXALIPLATIN
     Dosage: 110 MG, 1X/DAY
     Route: 041
     Dates: start: 20140709, end: 20140709
  14. ELPLAT [Suspect]
     Active Substance: OXALIPLATIN
     Dosage: 110 MG, 1X/DAY
     Route: 041
     Dates: start: 20140724, end: 20140724
  15. ELPLAT [Suspect]
     Active Substance: OXALIPLATIN
     Dosage: 110 MG, 1X/DAY
     Route: 041
     Dates: start: 20140807, end: 20140807
  16. ELPLAT [Suspect]
     Active Substance: OXALIPLATIN
     Dosage: 85 MG, 1X/DAY
     Route: 041
     Dates: start: 20140821, end: 20140821
  17. ELPLAT [Suspect]
     Active Substance: OXALIPLATIN
     Dosage: 65 MG, 1X/DAY
     Route: 041
     Dates: start: 20140904, end: 20140904
  18. LEVOFOLINATE YAKULT [Suspect]
     Active Substance: LEVOLEUCOVORIN CALCIUM
     Dosage: 250 MG, 1X/DAY
     Route: 041
     Dates: start: 20140807, end: 20140807
  19. LEVOFOLINATE YAKULT [Suspect]
     Active Substance: LEVOLEUCOVORIN CALCIUM
     Dosage: 250 MG, 1X/DAY
     Route: 041
     Dates: start: 20140821, end: 20140821
  20. CAMPTO [Suspect]
     Active Substance: IRINOTECAN
     Indication: PANCREATIC CARCINOMA
     Dosage: 200 MG, 1X/DAY (200 MG/BODY (148.8 MG/M2))
     Route: 041
     Dates: start: 20140625, end: 20140625
  21. LEVOFOLINATE YAKULT [Suspect]
     Active Substance: LEVOLEUCOVORIN CALCIUM
     Dosage: 250 MG, 1X/DAY
     Route: 041
     Dates: start: 20140724, end: 20140724
  22. LEVOFOLINATE YAKULT [Suspect]
     Active Substance: LEVOLEUCOVORIN CALCIUM
     Dosage: 250 MG, 1X/DAY
     Route: 041
     Dates: start: 20141002, end: 20141002
  23. 5-FU [Concomitant]
     Active Substance: FLUOROURACIL
     Dosage: 2400 MG/BODY/D1-2 (1785.7 MG/M2/D1-2)
     Dates: start: 20140709, end: 20141211
  24. CAMPTO [Suspect]
     Active Substance: IRINOTECAN
     Dosage: 200 MG, 1X/DAY
     Route: 041
     Dates: start: 20140724, end: 20140724
  25. CAMPTO [Suspect]
     Active Substance: IRINOTECAN
     Dosage: 200 MG, 1X/DAY
     Route: 041
     Dates: start: 20140807, end: 20140807
  26. CAMPTO [Suspect]
     Active Substance: IRINOTECAN
     Dosage: 200 MG, 1X/DAY
     Route: 041
     Dates: start: 20141127, end: 20141127
  27. LEVOFOLINATE YAKULT [Suspect]
     Active Substance: LEVOLEUCOVORIN CALCIUM
     Indication: PANCREATIC CARCINOMA
     Dosage: 250 MG, 1X/DAY (250 MG/BODY (186 MG/M2))
     Route: 041
     Dates: start: 20140625, end: 20140625
  28. LEVOFOLINATE YAKULT [Suspect]
     Active Substance: LEVOLEUCOVORIN CALCIUM
     Dosage: 250 MG, 1X/DAY
     Route: 041
     Dates: start: 20140918, end: 20140918
  29. ELPLAT [Suspect]
     Active Substance: OXALIPLATIN
     Indication: PANCREATIC CARCINOMA
     Dosage: 110 MG, 1X/DAY (110 MG/BODY (81.8 MG/M2))
     Route: 041
     Dates: start: 20150625, end: 20150625
  30. ELPLAT [Suspect]
     Active Substance: OXALIPLATIN
     Dosage: 200 MG, 1X/DAY
     Route: 041
  31. LEVOFOLINATE YAKULT [Suspect]
     Active Substance: LEVOLEUCOVORIN CALCIUM
     Dosage: 250 MG, 1X/DAY
     Route: 041
     Dates: start: 20140904, end: 20140904
  32. LEVOFOLINATE YAKULT [Suspect]
     Active Substance: LEVOLEUCOVORIN CALCIUM
     Dosage: 250 MG, 1X/DAY
     Route: 041
     Dates: start: 20141211, end: 20141211
  33. LEVOFOLINATE YAKULT [Suspect]
     Active Substance: LEVOLEUCOVORIN CALCIUM
     Dosage: 250 MG, 1X/DAY
     Route: 041
     Dates: start: 20141127, end: 20141127

REACTIONS (9)
  - Biliary tract infection [Unknown]
  - Decreased appetite [Unknown]
  - Haemoglobin decreased [Unknown]
  - Vomiting [Unknown]
  - Diarrhoea [Unknown]
  - Stomatitis [Unknown]
  - Fatigue [Unknown]
  - Peripheral sensory neuropathy [Unknown]
  - Nausea [Unknown]
